FAERS Safety Report 11367810 (Version 1)
Quarter: 2015Q3

REPORT INFORMATION
  Report Type: Spontaneous
  Country: US (occurrence: None)
  Receive Date: 20150811
  Receipt Date: 20150811
  Transmission Date: 20151125
  Serious: No
  Sender: FDA-Public Use
  Company Number: None

PATIENT
  Age: 25 Year
  Sex: Female
  Weight: 63.5 kg

DRUGS (1)
  1. ADVANCE WHITE BAKING SODA AND PEROXIDE TARTAR CONTROL [Suspect]
     Active Substance: SODIUM FLUORIDE
     Indication: DENTAL CARE

REACTIONS (5)
  - Oral mucosal eruption [None]
  - Glossodynia [None]
  - Chapped lips [None]
  - Aphthous ulcer [None]
  - Angular cheilitis [None]

NARRATIVE: CASE EVENT DATE: 20150807
